FAERS Safety Report 18274090 (Version 2)
Quarter: 2020Q3

REPORT INFORMATION
  Report Type: Report from Study
  Country: US (occurrence: US)
  Receive Date: 20200916
  Receipt Date: 20200918
  Transmission Date: 20201103
  Serious: Yes (Hospitalization)
  Sender: FDA-Public Use
  Company Number: US-ASTELLAS-2020US029977

PATIENT
  Age: 71 Year
  Sex: Male

DRUGS (3)
  1. ASP2215 [Suspect]
     Active Substance: GILTERITINIB
     Indication: ACUTE MYELOID LEUKAEMIA
     Route: 048
     Dates: start: 20200824, end: 20200907
  2. ATEZOLIZUMAB. [Suspect]
     Active Substance: ATEZOLIZUMAB
     Indication: ACUTE MYELOID LEUKAEMIA
     Route: 042
     Dates: start: 20200824, end: 20200908
  3. ASP2215 [Suspect]
     Active Substance: GILTERITINIB
     Dosage: UNK, UNKNOWN FREQ.
     Route: 048
     Dates: start: 20200913

REACTIONS (3)
  - Anaemia [Recovered/Resolved]
  - Muscular weakness [Not Recovered/Not Resolved]
  - Febrile neutropenia [Not Recovered/Not Resolved]

NARRATIVE: CASE EVENT DATE: 20200828
